FAERS Safety Report 8436220-9 (Version None)
Quarter: 2012Q2

REPORT INFORMATION
  Report Type: 
  Country: None (occurrence: None)
  Receive Date: 20120614
  Receipt Date: 20120608
  Transmission Date: 20120825
  Serious: Yes (Other)
  Sender: FDA-Public Use
  Company Number: US-MYLANLABS-2012S1009123

PATIENT
  Age: 35 Year
  Sex: Male

DRUGS (6)
  1. CLONAZEPAM [Suspect]
     Route: 048
     Dates: start: 20120101
  2. LEXAPRO [Concomitant]
     Indication: ANXIETY
     Route: 048
  3. CLONAZEPAM [Suspect]
     Indication: ANXIETY
     Route: 048
     Dates: start: 20120201, end: 20120101
  4. CLONIDINE [Concomitant]
     Indication: BLOOD PRESSURE INCREASED
     Route: 048
  5. SUBOXONE [Concomitant]
     Dosage: 8MG/2MG 1 1/2 QD
     Route: 060
  6. PROZAC [Concomitant]
     Indication: ANXIETY
     Route: 048

REACTIONS (5)
  - ANXIETY [None]
  - DRUG INEFFECTIVE FOR UNAPPROVED INDICATION [None]
  - DRUG SCREEN NEGATIVE [None]
  - DRUG WITHDRAWAL SYNDROME [None]
  - CONFUSIONAL STATE [None]
